FAERS Safety Report 23405927 (Version 1)
Quarter: 2024Q1

REPORT INFORMATION
  Report Type: Spontaneous
  Country: US (occurrence: None)
  Receive Date: 20240114
  Receipt Date: 20240114
  Transmission Date: 20240410
  Serious: Yes (Other)
  Sender: FDA-Public Use
  Company Number: None

PATIENT
  Age: 57 Year
  Sex: Female
  Weight: 92.25 kg

DRUGS (2)
  1. WEGOVY [Suspect]
     Active Substance: SEMAGLUTIDE
     Indication: Weight decreased
     Dosage: OTHER FREQUENCY : WEEKLY;?
     Route: 058
     Dates: start: 20230301, end: 20240112
  2. Synthtoid [Concomitant]

REACTIONS (4)
  - Post procedural complication [None]
  - Neuralgia [None]
  - Pain of skin [None]
  - Alopecia [None]

NARRATIVE: CASE EVENT DATE: 20230715
